FAERS Safety Report 20660911 (Version 3)
Quarter: 2022Q2

REPORT INFORMATION
  Report Type: Report from Study
  Country: MX (occurrence: MX)
  Receive Date: 20220331
  Receipt Date: 20220610
  Transmission Date: 20220721
  Serious: Yes (Death, Life-Threatening, Hospitalization, Other)
  Sender: FDA-Public Use
  Company Number: MX-BRISTOL-MYERS SQUIBB COMPANY-BMS-2021-057150

PATIENT
  Age: 69 Year
  Sex: Female
  Weight: 62 kg

DRUGS (11)
  1. PLACEBO [Suspect]
     Active Substance: UNSPECIFIED INGREDIENT
     Indication: Non-small cell lung cancer
     Dosage: MOST RECENT DOSE WAS RECEIVED ON 22-JUL-2021
     Route: 042
     Dates: start: 20210419
  2. CARBOPLATIN [Suspect]
     Active Substance: CARBOPLATIN
     Indication: Non-small cell lung cancer
     Dosage: MOST RECENT DOSE OF 185MG WAS RECEIVED ON 22-JUL-2021
     Route: 065
     Dates: start: 20210419
  3. PACLITAXEL [Suspect]
     Active Substance: PACLITAXEL
     Indication: Non-small cell lung cancer
     Dosage: MOST RECENT DOSE OF 146MG WAS RECEIVED ON 22-JUL-2021
     Route: 065
     Dates: start: 20210419
  4. CLONAZEPAM [Concomitant]
     Active Substance: CLONAZEPAM
     Indication: Product used for unknown indication
     Route: 048
     Dates: start: 1999
  5. PANTOPRAZOLE [Concomitant]
     Active Substance: PANTOPRAZOLE
     Indication: Product used for unknown indication
     Dosage: 40 ?????
     Route: 048
     Dates: start: 20210101
  6. NAPROXEN [Concomitant]
     Active Substance: NAPROXEN
     Indication: Product used for unknown indication
     Dosage: 500 ?????
     Route: 048
     Dates: start: 20210101
  7. CHLOROPYRAMINE [Concomitant]
     Active Substance: CHLOROPYRAMINE
     Indication: Prophylaxis
     Dosage: 20 ?????
     Route: 042
     Dates: start: 20210419
  8. FOSAPREPITANT [Concomitant]
     Active Substance: FOSAPREPITANT
     Indication: Prophylaxis
     Dosage: 150 ?????
     Route: 042
     Dates: start: 20210419
  9. PALONOSETRON [Concomitant]
     Active Substance: PALONOSETRON
     Indication: Prophylaxis
     Dosage: 0.25 ?????
     Route: 042
     Dates: start: 20210419
  10. METFORMIN [Concomitant]
     Active Substance: METFORMIN HYDROCHLORIDE
     Indication: Product used for unknown indication
     Route: 048
     Dates: start: 2005
  11. DEXAMETHASONE [Concomitant]
     Active Substance: DEXAMETHASONE
     Indication: Prophylaxis
     Dosage: 8 ?????
     Route: 042
     Dates: start: 20210419

REACTIONS (7)
  - Diarrhoea [Recovered/Resolved]
  - Hypovolaemic shock [Fatal]
  - Electrolyte imbalance [Recovered/Resolved]
  - Dehydration [Recovered/Resolved]
  - Hyponatraemia [Recovered/Resolved]
  - Platelet count decreased [Recovered/Resolved]
  - Anaemia [Recovered/Resolved]

NARRATIVE: CASE EVENT DATE: 20210608
